FAERS Safety Report 4371462-3 (Version None)
Quarter: 2004Q2

REPORT INFORMATION
  Report Type: 
  Country: None (occurrence: None)
  Receive Date: 20040602
  Receipt Date: 20040521
  Transmission Date: 20050107
  Serious: Yes (Hospitalization)
  Sender: FDA-Public Use
  Company Number: US-JNJFOC-20040505499

PATIENT
  Age: 49 Year
  Sex: Female
  Weight: 97.5234 kg

DRUGS (14)
  1. INFLIXIMAB (INFLIXIMAB, RECOMBINANT) LYOPHILIZED POWDER [Suspect]
     Indication: RHEUMATOID ARTHRITIS
     Dosage: INTRAVENOUS
     Route: 042
     Dates: start: 20040913
  2. COZAAR [Concomitant]
  3. ETODOLAC [Concomitant]
  4. FOLIC ACID [Concomitant]
  5. METHOTREXATE (METHOTEXATE) [Concomitant]
  6. METOPROLOL (METOPROLOL) [Concomitant]
  7. MULTIVITAMIN (MULTIVITAMIN) [Concomitant]
  8. NORVASC [Concomitant]
  9. POTASSIUM (POTASSIUM) [Concomitant]
  10. PREDNISONE TAB [Concomitant]
  11. PREMARIN [Concomitant]
  12. VICODIN [Concomitant]
  13. ZOLOFT [Concomitant]
  14. ADVAIR (SERETIDE MITE) [Concomitant]

REACTIONS (2)
  - CARDIAC FAILURE CONGESTIVE [None]
  - CHRONIC OBSTRUCTIVE AIRWAYS DISEASE EXACERBATED [None]
